FAERS Safety Report 13137418 (Version 1)
Quarter: 2017Q1

REPORT INFORMATION
  Report Type: Spontaneous
  Country: US (occurrence: US)
  Receive Date: 20170120
  Receipt Date: 20170120
  Transmission Date: 20170428
  Serious: No
  Sender: FDA-Public Use
  Company Number: None

PATIENT
  Age: 63 Year
  Sex: Female

DRUGS (1)
  1. CAPECITABINE. [Suspect]
     Active Substance: CAPECITABINE
     Indication: BREAST CANCER FEMALE
     Route: 048
     Dates: start: 20161209, end: 20170115

REACTIONS (5)
  - Nausea [None]
  - Erythema [None]
  - Diarrhoea [None]
  - Blister [None]
  - Vomiting [None]

NARRATIVE: CASE EVENT DATE: 20170115
